FAERS Safety Report 26065552 (Version 1)
Quarter: 2025Q4

REPORT INFORMATION
  Report Type: Spontaneous
  Country: EU (occurrence: EU)
  Receive Date: 20251119
  Receipt Date: 20251119
  Transmission Date: 20260118
  Serious: Yes (Other)
  Sender: MYLAN
  Company Number: EU-UCBSA-2025067334

PATIENT
  Age: 22 Year
  Sex: Male

DRUGS (4)
  1. LEVETIRACETAM [Suspect]
     Active Substance: LEVETIRACETAM
     Indication: Epilepsy
     Dosage: 1000 MILLIGRAM (1.5 - 0 - 2)
  2. LACOSAMIDE [Suspect]
     Active Substance: LACOSAMIDE
     Indication: Epilepsy
     Dosage: UNK
  3. LAMOTRIGINE [Concomitant]
     Active Substance: LAMOTRIGINE
     Indication: Product used for unknown indication
     Dosage: 100 MILLIGRAM (0.5-0-0.5)
  4. Apydan [Concomitant]
     Indication: Product used for unknown indication
     Dosage: 600 MILLIGRAM

REACTIONS (3)
  - Seizure [Unknown]
  - Generalised tonic-clonic seizure [Unknown]
  - Drug ineffective [Unknown]

NARRATIVE: CASE EVENT DATE: 20200101
